FAERS Safety Report 6550454-X (Version None)
Quarter: 2010Q1

REPORT INFORMATION
  Report Type: 
  Country: None (occurrence: None)
  Receive Date: 20100125
  Receipt Date: 20100115
  Transmission Date: 20100710
  Serious: Yes (Other)
  Sender: FDA-Public Use
  Company Number: US-JNJFOC-20100106626

PATIENT
  Age: 22 Year
  Sex: Female

DRUGS (3)
  1. TYLENOL 8 HOUR MUSCLES + PAIN [Suspect]
     Route: 048
  2. TYLENOL 8 HOUR MUSCLES + PAIN [Suspect]
     Indication: PAIN
     Route: 048
  3. ALBUTEROL [Concomitant]
     Indication: ASTHMA

REACTIONS (4)
  - ABDOMINAL PAIN UPPER [None]
  - CHEST PAIN [None]
  - DYSPNOEA [None]
  - PRODUCT QUALITY ISSUE [None]
